FAERS Safety Report 23794700 (Version 2)
Quarter: 2024Q2

REPORT INFORMATION
  Report Type: Spontaneous
  Country: DE (occurrence: DE)
  Receive Date: 20240429
  Receipt Date: 20240529
  Transmission Date: 20240716
  Serious: Yes (Death, Other)
  Sender: FDA-Public Use
  Company Number: DE-BRISTOL-MYERS SQUIBB COMPANY-2024-066442

PATIENT
  Age: 77 Year
  Sex: Female

DRUGS (47)
  1. POMALIDOMIDE [Suspect]
     Active Substance: POMALIDOMIDE
     Indication: Product used for unknown indication
     Dosage: DOSE : UNAVAILABLE;     FREQ : UNAVAILABLE
  2. THOMAPYRIN CLASSIC [Concomitant]
     Indication: Product used for unknown indication
  3. PANTOPRAZOLE [Concomitant]
     Active Substance: PANTOPRAZOLE
     Indication: Product used for unknown indication
     Dosage: 40
  4. CLEMASTINE [Concomitant]
     Active Substance: CLEMASTINE
     Indication: Product used for unknown indication
  5. METAMIZOLE [Concomitant]
     Active Substance: METAMIZOLE
     Indication: Product used for unknown indication
     Dosage: 500
     Route: 048
  6. BENZYDAMINE [Concomitant]
     Active Substance: BENZYDAMINE
     Indication: Product used for unknown indication
  7. SPIRONOLACTONE [Concomitant]
     Active Substance: SPIRONOLACTONE
     Indication: Product used for unknown indication
     Dosage: 50
  8. MAGNESIUM [Concomitant]
     Active Substance: MAGNESIUM
     Indication: Product used for unknown indication
     Dosage: SACHET?ALTE APOTHEKE
  9. OCTENISEPT [OCTENIDINE HYDROCHLORIDE] [Concomitant]
     Indication: Product used for unknown indication
  10. OCTENISEPT [OCTENIDINE HYDROCHLORIDE] [Concomitant]
  11. METAMIZOLE [Concomitant]
     Active Substance: METAMIZOLE
     Indication: Product used for unknown indication
     Dosage: ZENTIVA
  12. TORSEMIDE [Concomitant]
     Active Substance: TORSEMIDE
     Indication: Product used for unknown indication
  13. ALLOPURINOL [Concomitant]
     Active Substance: ALLOPURINOL
     Indication: Product used for unknown indication
     Dosage: 100
  14. METHOXY POLYETHYLENE GLYCOL-EPOETIN BETA [Concomitant]
     Active Substance: METHOXY POLYETHYLENE GLYCOL-EPOETIN BETA
     Indication: Product used for unknown indication
     Dosage: 30 MCG ?0.3 ML
  15. DAPAGLIFLOZIN [Concomitant]
     Active Substance: DAPAGLIFLOZIN
     Indication: Product used for unknown indication
  16. GLYCERIN [Concomitant]
     Active Substance: GLYCERIN
     Indication: Product used for unknown indication
     Dosage: FOR ADULT
  17. DESLORATADINA ACTAVIS [Concomitant]
     Indication: Product used for unknown indication
  18. VITAMIN K2 + VITAMIN D3 + CALCIUM [Concomitant]
     Indication: Product used for unknown indication
  19. BISOPROLOL [Concomitant]
     Active Substance: BISOPROLOL\BISOPROLOL FUMARATE
     Indication: Product used for unknown indication
  20. DEXAMETHASONE [Concomitant]
     Active Substance: DEXAMETHASONE
     Indication: Product used for unknown indication
     Dosage: 20
  21. DEXAMETHASONE [Concomitant]
     Active Substance: DEXAMETHASONE
  22. IRON [Concomitant]
     Active Substance: IRON
     Indication: Product used for unknown indication
     Dosage: 20
  23. ACICLOVIR PUREN [Concomitant]
     Indication: Product used for unknown indication
  24. ACICLOVIR PUREN [Concomitant]
     Dosage: HEUMAN
  25. AMOXICILLIN\CLAVULANIC ACID [Concomitant]
     Active Substance: AMOXICILLIN\CLAVULANIC ACID
     Indication: Product used for unknown indication
  26. XIPAMIDE [Concomitant]
     Active Substance: XIPAMIDE
     Indication: Product used for unknown indication
     Dosage: AAA PHARMA
  27. SODIUM BICARBONATE [Concomitant]
     Active Substance: SODIUM BICARBONATE
     Indication: Product used for unknown indication
     Dosage: AAA PHARMA
  28. OENOTHERA BIENNIS OIL [Concomitant]
     Indication: Product used for unknown indication
     Dosage: OIL
  29. SODIUM BICARBONATE [Concomitant]
     Active Substance: SODIUM BICARBONATE
     Indication: Product used for unknown indication
  30. WITCH HAZEL [HAMAMELIS SPP.] [Concomitant]
     Indication: Product used for unknown indication
  31. POLYETHYLENE GLYCOLS [Concomitant]
     Active Substance: POLYETHYLENE GLYCOLS
     Indication: Product used for unknown indication
  32. CANDESARTAN AL [Concomitant]
     Indication: Product used for unknown indication
     Dosage: 16?STADA
  33. CANDESARTAN AL [Concomitant]
  34. CHOLECALCIFEROL [Concomitant]
     Active Substance: CHOLECALCIFEROL
     Indication: Product used for unknown indication
     Dosage: 1000 IE
  35. ONDANSETRON BLUEFISH [ONDANSETRON] [Concomitant]
     Indication: Product used for unknown indication
  36. JARDIANCE [Concomitant]
     Active Substance: EMPAGLIFLOZIN
     Indication: Product used for unknown indication
  37. PAMIDRO CELL [Concomitant]
     Indication: Product used for unknown indication
     Dosage: 3 MG/ML
  38. BISOPROLOL FUMARATE\HYDROCHLOROTHIAZIDE [Concomitant]
     Active Substance: BISOPROLOL FUMARATE\HYDROCHLOROTHIAZIDE
     Indication: Product used for unknown indication
  39. LOSARTAN POTASSIUM [Concomitant]
     Active Substance: LOSARTAN POTASSIUM
     Indication: Product used for unknown indication
     Dosage: 100
  40. BEPANTHEN AUGEN- UND NASENSALBE [Concomitant]
     Indication: Product used for unknown indication
     Dosage: EYE AND NOSE
  41. LOSARTAN AXIROMED [Concomitant]
     Indication: Product used for unknown indication
     Dosage: 100
  42. PREDNISOLONE [Concomitant]
     Active Substance: PREDNISOLONE
     Indication: Product used for unknown indication
  43. DEKRISTOLVIT D3 [Concomitant]
     Indication: Product used for unknown indication
     Dosage: 2000 IE TAB
  44. SIDROGA KAMILLEBL. [Concomitant]
     Indication: Product used for unknown indication
     Dosage: 20*1.5G?TEE
  45. EMSER [AZULENE;CAMPHOR;EMSER SALT;EUCALYPTUS GLOBULUS OIL;MYRISTICA FR [Concomitant]
     Indication: Product used for unknown indication
  46. PURE ENCAPSULATIONS B12 FOLATE E [Concomitant]
     Indication: Product used for unknown indication
  47. CIPROFLOXACIN HYDROCHLORIDE [Concomitant]
     Active Substance: CIPROFLOXACIN HYDROCHLORIDE
     Indication: Product used for unknown indication

REACTIONS (1)
  - Death [Fatal]
